FAERS Safety Report 6702308-3 (Version None)
Quarter: 2010Q2

REPORT INFORMATION
  Report Type: 
  Country: None (occurrence: None)
  Receive Date: 20100429
  Receipt Date: 20100419
  Transmission Date: 20101027
  Serious: Yes (Other)
  Sender: FDA-Public Use
  Company Number: US-SANOFI-AVENTIS-2010SA023691

PATIENT
  Age: 55 Year
  Sex: Female

DRUGS (1)
  1. UROXATRAL [Suspect]
     Dosage: PATIENT'S PARTNER WAS ON UROXATRAL TABLETS SINCE 2 YEARS.
     Route: 067
     Dates: start: 20080101

REACTIONS (3)
  - CERVICAL DYSPLASIA [None]
  - SMEAR CERVIX ABNORMAL [None]
  - VAGINAL DISCHARGE [None]
